FAERS Safety Report 4402102-2 (Version None)
Quarter: 2004Q3

REPORT INFORMATION
  Report Type: 
  Country: None (occurrence: None)
  Receive Date: 20040720
  Receipt Date: 20040712
  Transmission Date: 20050211
  Serious: Yes (Hospitalization)
  Sender: FDA-Public Use
  Company Number: PHRM2004FR02327

PATIENT
  Age: 73 Year
  Sex: Female

DRUGS (7)
  1. NEORAL [Suspect]
     Indication: RENAL TRANSPLANT
     Dosage: 75 MG, BID
     Route: 048
     Dates: start: 20040430, end: 20040503
  2. NEORAL [Suspect]
     Dosage: 100 MG/DAY
     Route: 048
     Dates: end: 20040330
  3. NEORAL [Suspect]
     Dosage: 50 MG, BID
     Route: 048
     Dates: start: 20040504
  4. SIROLIMUS [Suspect]
     Indication: RENAL TRANSPLANT
     Dosage: 5 MG/DAY
     Route: 048
     Dates: start: 20040331, end: 20040427
  5. AMLOR [Suspect]
     Indication: HYPERTENSION
     Dosage: 5 MG/DAY
     Route: 048
     Dates: end: 20040506
  6. CALCITRIOL [Concomitant]
     Dosage: 1 DF, QW4
     Route: 048
  7. ATORVASTATIN CALCIUM [Concomitant]
     Indication: LIPID METABOLISM DISORDER
     Dosage: 1 DF/DAY
     Route: 048

REACTIONS (2)
  - OEDEMA PERIPHERAL [None]
  - PROTEINURIA [None]
